FAERS Safety Report 12484421 (Version 1)
Quarter: 2016Q2

REPORT INFORMATION
  Report Type: Report from Study
  Country: AR (occurrence: AR)
  Receive Date: 20160621
  Receipt Date: 20160621
  Transmission Date: 20160815
  Serious: Yes (Hospitalization)
  Sender: FDA-Public Use
  Company Number: AR-EMD SERONO-8090043

PATIENT
  Sex: Female

DRUGS (1)
  1. REBIF [Suspect]
     Active Substance: INTERFERON BETA-1A
     Indication: MULTIPLE SCLEROSIS
     Dates: start: 201101

REACTIONS (5)
  - Blood pressure abnormal [Unknown]
  - Liver disorder [Unknown]
  - Lung perforation [Unknown]
  - Pneumonia [Unknown]
  - Vertigo [Unknown]
